FAERS Safety Report 22281204 (Version 1)
Quarter: 2023Q2

REPORT INFORMATION
  Report Type: Report from Study
  Country: AU (occurrence: AU)
  Receive Date: 20230504
  Receipt Date: 20230504
  Transmission Date: 20230721
  Serious: Yes (Hospitalization)
  Sender: FDA-Public Use
  Company Number: AU-SA-SAC20230430000004

PATIENT
  Age: 71 Year
  Sex: Male
  Weight: 81 kg

DRUGS (4)
  1. ISATUXIMAB [Suspect]
     Active Substance: ISATUXIMAB
     Indication: Primary amyloidosis
     Dosage: 870 MG, QW
     Route: 042
     Dates: start: 20230327, end: 20230327
  2. POMALIDOMIDE [Suspect]
     Active Substance: POMALIDOMIDE
     Indication: Primary amyloidosis
     Dosage: 4 MG (DAY 1-21)
     Route: 048
     Dates: start: 20230410, end: 20230410
  3. POMALIDOMIDE [Suspect]
     Active Substance: POMALIDOMIDE
     Dosage: 4 MG (DAY 1-21)
     Route: 048
     Dates: start: 20230327, end: 20230327
  4. DEXAMETHASONE [Suspect]
     Active Substance: DEXAMETHASONE
     Indication: Primary amyloidosis
     Dosage: 20 MG, QW
     Route: 048
     Dates: start: 20230327, end: 20230327

REACTIONS (1)
  - Picornavirus infection [Recovered/Resolved]

NARRATIVE: CASE EVENT DATE: 20230410
